FAERS Safety Report 9984567 (Version 1)
Quarter: 2014Q1

REPORT INFORMATION
  Report Type: Spontaneous
  Country: US (occurrence: US)
  Receive Date: 20140307
  Receipt Date: 20140307
  Transmission Date: 20141002
  Serious: Yes (Other)
  Sender: FDA-Public Use
  Company Number: US-TEVA-467013USA

PATIENT
  Age: 26 Year
  Sex: Female
  Weight: 73.09 kg

DRUGS (2)
  1. PARAGARD 380A [Suspect]
     Indication: CONTRACEPTION
     Route: 015
     Dates: start: 20131218, end: 20140228
  2. NORVASC [Concomitant]
     Indication: HYPERTENSION

REACTIONS (1)
  - Device dislocation [Recovered/Resolved]
